FAERS Safety Report 6803319-X (Version None)
Quarter: 2010Q2

REPORT INFORMATION
  Report Type: 
  Country: None (occurrence: None)
  Receive Date: 20100628
  Receipt Date: 20100616
  Transmission Date: 20101027
  Serious: Yes (Hospitalization)
  Sender: FDA-Public Use
  Company Number: IE-SHIRE-SPV1-2010-01114

PATIENT

DRUGS (3)
  1. IDURSULFASE [Suspect]
     Indication: MUCOPOLYSACCHARIDOSIS II
     Dosage: 6 MG, 1X/WEEK
     Route: 041
     Dates: start: 20091112
  2. ACETAMINOPHEN [Concomitant]
     Indication: PAIN
     Dates: start: 20091112
  3. CHLORPHENAMINE [Concomitant]
     Indication: PREMEDICATION
     Dosage: 1 MG, 1X/WEEK
     Route: 048

REACTIONS (2)
  - INGUINAL HERNIA [None]
  - UMBILICAL HERNIA [None]
